FAERS Safety Report 7533001-5 (Version None)
Quarter: 2011Q2

REPORT INFORMATION
  Report Type: 
  Country: None (occurrence: None)
  Receive Date: 20110607
  Receipt Date: 20110607
  Transmission Date: 20111010
  Serious: Yes (Other)
  Sender: FDA-Public Use
  Company Number: None

PATIENT
  Sex: Female
  Weight: 74.8435 kg

DRUGS (1)
  1. ADDERALL 20 [Suspect]
     Indication: NARCOLEPSY
     Dosage: 20 MG 2-3 TIMES DAILY PO (DURATION: ABOUT A YEAR AND A HALF)
     Route: 048

REACTIONS (3)
  - CONFUSIONAL STATE [None]
  - MEMORY IMPAIRMENT [None]
  - LEARNING DISORDER [None]
